FAERS Safety Report 6993617-1 (Version None)
Quarter: 2010Q3

REPORT INFORMATION
  Report Type: 
  Country: None (occurrence: None)
  Receive Date: 20100917
  Receipt Date: 20100909
  Transmission Date: 20110219
  Serious: Yes (Hospitalization)
  Sender: FDA-Public Use
  Company Number: US-AMGEN-QUU433520

PATIENT
  Sex: Female

DRUGS (3)
  1. NPLATE [Suspect]
     Indication: IDIOPATHIC THROMBOCYTOPENIC PURPURA
     Dates: start: 20091223, end: 20100113
  2. CORTICOSTEROIDS [Concomitant]
     Dates: start: 20091120
  3. RITUXIMAB [Concomitant]
     Dates: start: 20091221

REACTIONS (2)
  - ANAEMIA [None]
  - HAEMORRHAGE [None]
